FAERS Safety Report 10182738 (Version 1)
Quarter: 2014Q2

REPORT INFORMATION
  Report Type: Spontaneous
  Country: US (occurrence: None)
  Receive Date: 20140519
  Receipt Date: 20140519
  Transmission Date: 20141212
  Serious: Yes (Other)
  Sender: FDA-Public Use
  Company Number: None

PATIENT
  Age: 38 Year
  Sex: Female
  Weight: 87.54 kg

DRUGS (1)
  1. ADDERALL [Suspect]
     Indication: ATTENTION DEFICIT/HYPERACTIVITY DISORDER
     Dosage: 20 MG 1 PILL ONCE DAILY TAKEN BY MOUTH
     Route: 048
     Dates: start: 20140513, end: 20140517

REACTIONS (20)
  - Urticaria [None]
  - Eyelid disorder [None]
  - Burning sensation [None]
  - Lip swelling [None]
  - Lip dry [None]
  - Rhinorrhoea [None]
  - Burning sensation mucosal [None]
  - Oropharyngeal pain [None]
  - Throat irritation [None]
  - Dry throat [None]
  - Throat tightness [None]
  - Choking [None]
  - Pain [None]
  - Diarrhoea [None]
  - Aphagia [None]
  - Disturbance in attention [None]
  - Dyspnoea [None]
  - Dysphagia [None]
  - Insomnia [None]
  - Drug ineffective [None]
